FAERS Safety Report 8886100 (Version 1)
Quarter: 2012Q4

REPORT INFORMATION
  Report Type: 
  Country: US (occurrence: US)
  Receive Date: 20121105
  Receipt Date: 20121105
  Transmission Date: 20130627
  Serious: No
  Sender: FDA-Public Use
  Company Number: US-ASTRAZENECA-2012SE28353

PATIENT
  Age: 47 Year
  Sex: Female

DRUGS (2)
  1. RHINOCORT AQUA [Suspect]
     Indication: RHINITIS ALLERGIC
     Route: 045
     Dates: start: 1998
  2. ALLEGRA [Concomitant]

REACTIONS (4)
  - Ear infection [Unknown]
  - Chronic sinusitis [Unknown]
  - Nasal disorder [Unknown]
  - Drug dose omission [Unknown]
